FAERS Safety Report 10081745 (Version 2)
Quarter: 2014Q2

REPORT INFORMATION
  Report Type: Spontaneous
  Country: US (occurrence: US)
  Receive Date: 20140416
  Receipt Date: 20140515
  Transmission Date: 20141212
  Serious: No
  Sender: FDA-Public Use
  Company Number: US-BAXTER-2014BAX017749

PATIENT
  Age: 61 Year
  Sex: Male

DRUGS (1)
  1. DIANEAL LOW CALCIUM [Suspect]
     Indication: PERITONEAL DIALYSIS
     Route: 033
     Dates: start: 201403

REACTIONS (6)
  - Headache [Recovering/Resolving]
  - Groin pain [Recovering/Resolving]
  - Back pain [Recovering/Resolving]
  - Chest pain [Recovering/Resolving]
  - Pain in extremity [Unknown]
  - Procedural pain [Recovered/Resolved]
